FAERS Safety Report 7529951-6 (Version None)
Quarter: 2011Q2

REPORT INFORMATION
  Report Type: 
  Country: None (occurrence: None)
  Receive Date: 20110527
  Receipt Date: 20110518
  Transmission Date: 20111010
  Serious: Yes (Hospitalization)
  Sender: FDA-Public Use
  Company Number: 2011SP023137

PATIENT
  Age: 43 Year
  Sex: Male
  Weight: 152.4086 kg

DRUGS (7)
  1. LASIX [Concomitant]
  2. LOSARTAN POTASSIUM [Concomitant]
  3. POTASSIUM CHLORIDE [Concomitant]
  4. DEXAMETHASONE SODIUM PHOSPHATE [Suspect]
     Indication: DERMATITIS CONTACT
     Dosage: 8 MG; ; IM
     Route: 030
     Dates: start: 20110323, end: 20110401
  5. VIAGRA [Concomitant]
  6. ADIPEX [Concomitant]
  7. BETAMETHASONE SODIUM PHOSPHATE [Suspect]
     Indication: DERMATITIS CONTACT
     Dosage: ;IM
     Route: 030
     Dates: start: 20110323, end: 20110323

REACTIONS (11)
  - HAEMOGLOBIN INCREASED [None]
  - BLOOD CHLORIDE DECREASED [None]
  - OFF LABEL USE [None]
  - PULMONARY HYPERTENSION [None]
  - BACK PAIN [None]
  - CARDIAC FAILURE CONGESTIVE [None]
  - ELECTROCARDIOGRAM T WAVE AMPLITUDE DECREASED [None]
  - BLOOD SODIUM DECREASED [None]
  - BLOOD GLUCOSE INCREASED [None]
  - ALANINE AMINOTRANSFERASE INCREASED [None]
  - HAEMATOCRIT DECREASED [None]
